FAERS Safety Report 7045629-X (Version None)
Quarter: 2010Q4

REPORT INFORMATION
  Report Type: 
  Country: None (occurrence: None)
  Receive Date: 20101014
  Receipt Date: 20101001
  Transmission Date: 20110411
  Serious: Yes (Hospitalization, Other)
  Sender: FDA-Public Use
  Company Number: GB-WATSON-2010-13455

PATIENT
  Sex: Male

DRUGS (1)
  1. ALENDRONATE SODIUM [Suspect]
     Indication: OSTEOPOROSIS
     Dosage: 70 MG, UNKNOWN
     Route: 065
     Dates: start: 20090901

REACTIONS (2)
  - COUGH [None]
  - PULMONARY EMBOLISM [None]
